FAERS Safety Report 8131963-9 (Version None)
Quarter: 2012Q1

REPORT INFORMATION
  Report Type: 
  Country: None (occurrence: None)
  Receive Date: 20120213
  Receipt Date: 20120130
  Transmission Date: 20120608
  Serious: Yes (Other)
  Sender: FDA-Public Use
  Company Number: CA-UCBSA-047319

PATIENT
  Age: 53 Year
  Sex: Female

DRUGS (13)
  1. LYRICA [Concomitant]
     Dosage: DOSE:UNK , EVERY NIGHT AT BED TIME
     Route: 048
  2. PREDNISONE TAB [Concomitant]
     Indication: RHEUMATOID ARTHRITIS
     Dosage: DOSE:TITRATE ONCE DAILY
     Route: 048
  3. CALCIUM WITH VITAMIN D [Concomitant]
     Dosage: UNKNOWN DOSE
     Route: 048
  4. CIMZIA [Suspect]
     Route: 058
     Dates: start: 20100613, end: 20100701
  5. RAN CITALO [Concomitant]
     Route: 048
  6. INDOMETHACIN [Concomitant]
     Route: 048
  7. HYDROXYZIN [Concomitant]
     Route: 048
  8. ASCORBIC ACID [Concomitant]
     Dosage: UNKNOWN DOSE
     Route: 048
  9. FOLIC ACID [Concomitant]
     Route: 048
  10. METHOTREXATE [Concomitant]
     Indication: RHEUMATOID ARTHRITIS
     Route: 048
     Dates: start: 20090101
  11. ATIVAN [Concomitant]
     Indication: SLEEP DISORDER
     Dosage: UNKNOWN DOSE
     Route: 048
  12. CIMZIA [Suspect]
     Indication: RHEUMATOID ARTHRITIS
     Route: 058
     Dates: start: 20100701
  13. GLUCOSAMINE WITH MSM [Concomitant]
     Dosage: UNKNOWN DOSE
     Route: 048

REACTIONS (5)
  - FIBROMYALGIA [None]
  - WHITE BLOOD CELL COUNT DECREASED [None]
  - URINARY TRACT INFECTION [None]
  - VULVOVAGINAL MYCOTIC INFECTION [None]
  - VAGINAL DISCHARGE [None]
